FAERS Safety Report 10650668 (Version 1)
Quarter: 2014Q4

REPORT INFORMATION
  Report Type: Report from Study
  Country: AR (occurrence: AR)
  Receive Date: 20141214
  Receipt Date: 20141214
  Transmission Date: 20150529
  Serious: Yes (Other)
  Sender: FDA-Public Use
  Company Number: PHHY2014AR162967

PATIENT
  Sex: Male

DRUGS (1)
  1. ACLASTA [Suspect]
     Active Substance: ZOLEDRONIC ACID
     Indication: ENDOCRINE DISORDER
     Dosage: UNK
     Route: 042

REACTIONS (1)
  - Chronic obstructive pulmonary disease [Not Recovered/Not Resolved]
